FAERS Safety Report 24587210 (Version 1)
Quarter: 2024Q4

REPORT INFORMATION
  Report Type: Spontaneous
  Country: JP (occurrence: JP)
  Receive Date: 20241107
  Receipt Date: 20241107
  Transmission Date: 20250115
  Serious: Yes (Other)
  Sender: HELSINN HEALTHCARE
  Company Number: JP-HBP-2024JP031381

PATIENT
  Age: 63 Year
  Sex: Female
  Weight: 76.9 kg

DRUGS (18)
  1. PALONOSETRON HYDROCHLORIDE [Suspect]
     Active Substance: PALONOSETRON HYDROCHLORIDE
     Indication: Prophylaxis of nausea and vomiting
     Dosage: UNK, UNKNOWN
     Route: 041
  2. PALONOSETRON HYDROCHLORIDE [Suspect]
     Active Substance: PALONOSETRON HYDROCHLORIDE
     Dosage: UNK, UNKNOWN
     Route: 041
  3. PALONOSETRON HYDROCHLORIDE [Suspect]
     Active Substance: PALONOSETRON HYDROCHLORIDE
     Dosage: UNK, UNKNOWN
     Route: 041
  4. PALONOSETRON HYDROCHLORIDE [Suspect]
     Active Substance: PALONOSETRON HYDROCHLORIDE
     Dosage: UNK, UNKNOWN
     Route: 041
  5. ALOXI [Suspect]
     Active Substance: PALONOSETRON HYDROCHLORIDE
     Indication: Product used for unknown indication
     Dosage: UNK, UNKNOWN
     Route: 041
  6. OLANZAPINE [Suspect]
     Active Substance: OLANZAPINE
     Indication: Prophylaxis of nausea and vomiting
     Dosage: UNK, UNKNOWN
     Route: 048
  7. APREPITANT [Suspect]
     Active Substance: APREPITANT
     Indication: Prophylaxis of nausea and vomiting
     Dosage: UNK, UNKNOWN
     Route: 048
  8. APREPITANT [Suspect]
     Active Substance: APREPITANT
     Dosage: UNK, UNKNOWN
     Route: 048
  9. APREPITANT [Suspect]
     Active Substance: APREPITANT
     Dosage: UNK, UNKNOWN
     Route: 048
  10. APREPITANT [Suspect]
     Active Substance: APREPITANT
     Dosage: UNK, UNKNOWN
     Route: 048
  11. ETOPOSIDE [Suspect]
     Active Substance: ETOPOSIDE
     Indication: Small cell lung cancer limited stage
     Dosage: UNK, UNKNOWN
     Route: 041
  12. ETOPOSIDE [Suspect]
     Active Substance: ETOPOSIDE
     Dosage: UNK, UNKNOWN
     Route: 041
  13. ETOPOSIDE [Suspect]
     Active Substance: ETOPOSIDE
     Dosage: UNK, UNKNOWN
     Route: 041
  14. ETOPOSIDE [Suspect]
     Active Substance: ETOPOSIDE
     Dosage: UNK, UNKNOWN
     Route: 041
  15. LAMOTRIGINE [Suspect]
     Active Substance: LAMOTRIGINE
     Indication: Paraneoplastic neurological syndrome
     Dosage: UNK, UNKNOWN
     Route: 048
  16. LAMOTRIGINE [Suspect]
     Active Substance: LAMOTRIGINE
     Dosage: 3000 MILLIGRAM, QD
     Route: 048
  17. LEVETIRACETAM [Suspect]
     Active Substance: LEVETIRACETAM
     Indication: Paraneoplastic neurological syndrome
     Dosage: UNK, UNKNOWN
     Route: 048
  18. LEVETIRACETAM [Suspect]
     Active Substance: LEVETIRACETAM
     Dosage: 150 MILLIGRAM, QD
     Route: 048

REACTIONS (3)
  - Seizure [Recovered/Resolved]
  - Symptom recurrence [Recovered/Resolved]
  - Drug interaction [Unknown]
